FAERS Safety Report 5405328-4 (Version None)
Quarter: 2007Q3

REPORT INFORMATION
  Report Type: 
  Country: None (occurrence: None)
  Receive Date: 20070803
  Receipt Date: 20070731
  Transmission Date: 20080115
  Serious: Yes (Other)
  Sender: FDA-Public Use
  Company Number: JP-ABBOTT-07P-087-0376250-00

PATIENT
  Age: 71 Year
  Sex: Male
  Weight: 57 kg

DRUGS (9)
  1. SEVOFLURANE [Suspect]
     Indication: GENERAL ANAESTHESIA
     Dosage: UP TO 5%
  2. SEVOFLURANE [Suspect]
     Dosage: MAINTAINED AT 0.8% TO 1.7%
  3. SEVOFLURANE [Suspect]
     Dosage: MAINTAINED AT 1.5% TO 2.9%
  4. DIAZEPAM [Concomitant]
     Indication: PREMEDICATION
     Route: 048
  5. THIAMYLAL [Concomitant]
     Indication: GENERAL ANAESTHESIA
  6. FENTANYL [Concomitant]
     Indication: GENERAL ANAESTHESIA
  7. FENTANYL [Concomitant]
  8. VECURONIUM BROMIDE [Concomitant]
     Indication: MUSCLE RELAXANT THERAPY
  9. OINTMENT [Concomitant]
     Indication: DRUG USE FOR UNKNOWN INDICATION
     Route: 047

REACTIONS (1)
  - UNWANTED AWARENESS DURING ANAESTHESIA [None]
